FAERS Safety Report 8265154-8 (Version None)
Quarter: 2012Q2

REPORT INFORMATION
  Report Type: 
  Country: None (occurrence: None)
  Receive Date: 20120406
  Receipt Date: 20120402
  Transmission Date: 20120825
  Serious: Yes (Death, Hospitalization)
  Sender: FDA-Public Use
  Company Number: US-GILEAD-2012-0051654

PATIENT
  Age: 66 Year
  Sex: Female

DRUGS (1)
  1. LETAIRIS [Suspect]
     Indication: PULMONARY HYPERTENSION
     Dosage: 10 MG, UNK
     Route: 048
     Dates: start: 20081227

REACTIONS (4)
  - PULMONARY ARTERIAL HYPERTENSION [None]
  - LOWER LIMB FRACTURE [None]
  - FALL [None]
  - COR PULMONALE [None]
